FAERS Safety Report 5277039-X (Version None)
Quarter: 2007Q1

REPORT INFORMATION
  Report Type: 
  Country: None (occurrence: None)
  Receive Date: 20070327
  Receipt Date: 20070214
  Transmission Date: 20070707
  Serious: No
  Sender: FDA-Public Use
  Company Number: US-BRISTOL-MYERS SQUIBB COMPANY-13681523

PATIENT
  Sex: Female

DRUGS (1)
  1. ORENCIA [Suspect]
     Dates: start: 20060401

REACTIONS (1)
  - ALOPECIA [None]
